FAERS Safety Report 24632149 (Version 1)
Quarter: 2024Q4

REPORT INFORMATION
  Report Type: Spontaneous
  Country: US (occurrence: None)
  Receive Date: 20241118
  Receipt Date: 20241118
  Transmission Date: 20250115
  Serious: Yes (Hospitalization)
  Sender: Public
  Company Number: None

PATIENT
  Age: 34 Year
  Sex: Female

DRUGS (1)
  1. COSENTYX [Suspect]
     Active Substance: SECUKINUMAB
     Indication: Psoriasis
     Dosage: FREQ: INJECT 2 PENS UNDER THE SKIN (SUBCUTANEOUS INJECTION) EVERY 4 WEEKS IN THE ABDOMEN, THIGH, OR
     Route: 058
     Dates: start: 20211010

REACTIONS (3)
  - Pain [None]
  - Intentional dose omission [None]
  - Loss of personal independence in daily activities [None]

NARRATIVE: CASE EVENT DATE: 20241016
